FAERS Safety Report 12255487 (Version 1)
Quarter: 2016Q2

REPORT INFORMATION
  Report Type: Spontaneous
  Country: US (occurrence: None)
  Receive Date: 20160411
  Receipt Date: 20160411
  Transmission Date: 20160815
  Serious: Yes (Death)
  Sender: FDA-Public Use
  Company Number: None

PATIENT
  Age: 64 Year
  Sex: Male

DRUGS (12)
  1. ZONISAMIDE (ZONEGRAN) [Concomitant]
  2. CALCIUM-VITAMIN D [Concomitant]
  3. LACTULOSE. [Concomitant]
     Active Substance: LACTULOSE
  4. PEPCID [Concomitant]
     Active Substance: FAMOTIDINE
  5. FEXOFENADINE [Concomitant]
     Active Substance: FEXOFENADINE\FEXOFENADINE HYDROCHLORIDE
  6. SOFOSBUVIR GILEAD SCIENCES, INC [Suspect]
     Active Substance: SOFOSBUVIR
  7. LASTACAFT [Concomitant]
     Active Substance: ALCAFTADINE
  8. COPEGUS [Suspect]
     Active Substance: RIBAVIRIN
     Indication: HEPATITIS C
     Route: 048
     Dates: start: 20151209, end: 20160226
  9. MULTIVITAMIN [Concomitant]
     Active Substance: VITAMINS
  10. TRIAMCINOLONE (KENALOG) [Concomitant]
  11. URSODIOL. [Concomitant]
     Active Substance: URSODIOL
  12. DACLATASVIR 60 MG BRISTOL-MYERS SQUIBB [Suspect]
     Active Substance: DACLATASVIR
     Indication: HEPATITIS C
     Dates: start: 20151209, end: 20160226

REACTIONS (9)
  - Acute kidney injury [None]
  - Hyperbilirubinaemia [None]
  - White blood cell count increased [None]
  - Oesophageal varices haemorrhage [None]
  - Right ventricular failure [None]
  - Haemodynamic instability [None]
  - Cardiac arrest [None]
  - Hepatic encephalopathy [None]
  - Rectal haemorrhage [None]

NARRATIVE: CASE EVENT DATE: 20160218
